FAERS Safety Report 9528187 (Version 1)
Quarter: 2013Q1

REPORT INFORMATION
  Report Type: Spontaneous
  Country: US (occurrence: None)
  Receive Date: 20130314
  Receipt Date: 20130314
  Transmission Date: 20140127
  Serious: No
  Sender: FDA-Public Use
  Company Number: 1211USA010881

PATIENT
  Age: 57 Year
  Sex: Male

DRUGS (3)
  1. VICTRELIS [Suspect]
     Indication: HEPATITIS C
     Route: 048
  2. PEGINTRON [Suspect]
     Dosage: UNK, QW, SUBCUTANEOUS
     Route: 058
  3. RIBASPHERE (RIBAVIRIN) [Suspect]

REACTIONS (1)
  - Rash [None]
